FAERS Safety Report 13555160 (Version 4)
Quarter: 2024Q3

REPORT INFORMATION
  Report Type: Spontaneous
  Country: US (occurrence: US)
  Receive Date: 20170517
  Receipt Date: 20240730
  Transmission Date: 20241017
  Serious: Yes (Death, Other)
  Sender: MERCK
  Company Number: US-009507513-1705USA002200

PATIENT
  Age: 76 Year
  Sex: Female
  Weight: 68.7 kg

DRUGS (2)
  1. EMEND [Interacting]
     Active Substance: APREPITANT
     Indication: Prophylaxis of nausea and vomiting
     Dosage: 150 MG, Q3WEEK
     Route: 042
     Dates: start: 20170403
  2. PIMOZIDE [Concomitant]
     Active Substance: PIMOZIDE

REACTIONS (4)
  - Death [Fatal]
  - Drug interaction [Recovered/Resolved]
  - Blood pressure decreased [Recovered/Resolved]
  - Chest pain [Recovered/Resolved]

NARRATIVE: CASE EVENT DATE: 20170403
